FAERS Safety Report 4790364-1 (Version None)
Quarter: 2005Q4

REPORT INFORMATION
  Report Type: 
  Country: None (occurrence: None)
  Receive Date: 20051005
  Receipt Date: 20051005
  Transmission Date: 20060501
  Serious: Yes (Life-Threatening, Hospitalization)
  Sender: FDA-Public Use
  Company Number: None

PATIENT
  Age: 38 Year
  Sex: Female
  Weight: 56 kg

DRUGS (2)
  1. MIRCETTE [Suspect]
     Indication: ENDOMETRIOSIS
     Dosage: 1 TABLET DAILY
  2. MIRCETTE [Suspect]
     Indication: MENORRHAGIA
     Dosage: 1 TABLET DAILY

REACTIONS (2)
  - MUSCLE SPASMS [None]
  - PULMONARY EMBOLISM [None]
